FAERS Safety Report 15265406 (Version 1)
Quarter: 2018Q3

REPORT INFORMATION
  Report Type: Report from Study
  Country: None (occurrence: US)
  Receive Date: 20180810
  Receipt Date: 20180810
  Transmission Date: 20181010
  Serious: Yes (Hospitalization)
  Sender: FDA-Public Use
  Company Number: US-ABBVIE-18K-163-2264400-00

PATIENT
  Age: 53 Year
  Sex: Female

DRUGS (1)
  1. HUMIRA [Suspect]
     Active Substance: ADALIMUMAB
     Indication: RHEUMATOID ARTHRITIS
     Route: 058

REACTIONS (19)
  - Genital infection bacterial [Recovering/Resolving]
  - Peripheral swelling [Not Recovered/Not Resolved]
  - Vital functions abnormal [Recovered/Resolved]
  - Asthenia [Unknown]
  - Hypotension [Unknown]
  - Weight increased [Not Recovered/Not Resolved]
  - Drug ineffective [Recovering/Resolving]
  - Pain in extremity [Recovering/Resolving]
  - Arthralgia [Not Recovered/Not Resolved]
  - Confusional state [Recovered/Resolved]
  - Sinus congestion [Recovering/Resolving]
  - Arthralgia [Recovering/Resolving]
  - Fatigue [Not Recovered/Not Resolved]
  - Skin discolouration [Recovered/Resolved]
  - Hypoaesthesia [Recovering/Resolving]
  - Oedema [Unknown]
  - Depression [Unknown]
  - Swelling [Recovered/Resolved]
  - Rheumatoid arthritis [Unknown]

NARRATIVE: CASE EVENT DATE: 201711
